FAERS Safety Report 11052425 (Version 1)
Quarter: 2015Q2

REPORT INFORMATION
  Report Type: Spontaneous
  Country: US (occurrence: US)
  Receive Date: 20150421
  Receipt Date: 20150421
  Transmission Date: 20150821
  Serious: Yes (Hospitalization)
  Sender: FDA-Public Use
  Company Number: US-ASTRAZENECA-2015SE35638

PATIENT
  Age: 82 Year
  Sex: Male
  Weight: 79.8 kg

DRUGS (27)
  1. SIMVASTATIN. [Concomitant]
     Active Substance: SIMVASTATIN
  2. FAMOTIDINE. [Concomitant]
     Active Substance: FAMOTIDINE
  3. ASPIRIN. [Concomitant]
     Active Substance: ASPIRIN
     Indication: CARDIAC DISORDER
  4. LISINOPRIL. [Suspect]
     Active Substance: LISINOPRIL
     Route: 048
  5. CIPRO [Suspect]
     Active Substance: CIPROFLOXACIN HYDROCHLORIDE
     Route: 065
  6. TYLENOL [Concomitant]
     Active Substance: ACETAMINOPHEN
  7. LORATIDINE [Concomitant]
     Active Substance: LORATADINE
  8. TRAZODONE [Concomitant]
     Active Substance: TRAZODONE HYDROCHLORIDE
  9. KADIAN [Concomitant]
     Active Substance: MORPHINE SULFATE
  10. PULMICORT FLEXHALER [Suspect]
     Active Substance: BUDESONIDE
     Indication: CHRONIC OBSTRUCTIVE PULMONARY DISEASE
     Dosage: 2 PUFFS 360 UG; TWO TIMES A DAY
     Route: 055
  11. PREDNISONE. [Concomitant]
     Active Substance: PREDNISONE
     Indication: ILL-DEFINED DISORDER
  12. VENTOLIN [Concomitant]
     Active Substance: ALBUTEROL SULFATE
  13. ATENOLOL. [Suspect]
     Active Substance: ATENOLOL
     Route: 065
  14. ATROVENT [Concomitant]
     Active Substance: IPRATROPIUM BROMIDE
     Route: 045
  15. FLOMAX [Concomitant]
     Active Substance: TAMSULOSIN HYDROCHLORIDE
  16. LIDODERM [Concomitant]
     Active Substance: LIDOCAINE
     Indication: PAIN
     Route: 062
  17. PREDNISONE. [Concomitant]
     Active Substance: PREDNISONE
     Indication: BONE DISORDER
  18. HUMIBID [Concomitant]
     Active Substance: GUAIFENESIN
     Dosage: 12 HOUR
  19. PROVENTIL [Concomitant]
     Active Substance: ALBUTEROL
     Indication: INHALATION THERAPY
  20. DUONEB [Concomitant]
     Active Substance: ALBUTEROL SULFATE\IPRATROPIUM BROMIDE
     Dosage: FIVE TIMES DAILY
     Route: 055
  21. FLUTICASONE [Concomitant]
     Active Substance: FLUTICASONE\FLUTICASONE PROPIONATE
     Dosage: 27.5
     Route: 045
  22. SINGULAIR [Concomitant]
     Active Substance: MONTELUKAST SODIUM
  23. PREDNISONE. [Concomitant]
     Active Substance: PREDNISONE
     Indication: BONE DISORDER
     Dates: start: 1976
  24. PREDNISONE. [Concomitant]
     Active Substance: PREDNISONE
     Indication: ILL-DEFINED DISORDER
     Dates: start: 1976
  25. LORAZEPAM. [Concomitant]
     Active Substance: LORAZEPAM
  26. NITROSTAT [Concomitant]
     Active Substance: NITROGLYCERIN
     Indication: CARDIAC DISORDER
  27. MORPHINE [Concomitant]
     Active Substance: MORPHINE

REACTIONS (6)
  - Lung infection [Recovered/Resolved]
  - Oral discomfort [Unknown]
  - Off label use [Not Recovered/Not Resolved]
  - Dyspnoea [Recovered/Resolved]
  - Diabetes mellitus [Unknown]
  - Confusional state [Recovered/Resolved]

NARRATIVE: CASE EVENT DATE: 2013
